FAERS Safety Report 10223011 (Version 1)
Quarter: 2014Q2

REPORT INFORMATION
  Report Type: Spontaneous
  Country: FR (occurrence: FR)
  Receive Date: 20140607
  Receipt Date: 20140607
  Transmission Date: 20141212
  Serious: Yes (Death, Other)
  Sender: FDA-Public Use
  Company Number: PHHY2014FR068124

PATIENT
  Age: 33 Year
  Sex: Female

DRUGS (3)
  1. DOCETAXEL [Suspect]
     Indication: INVASIVE DUCTAL BREAST CARCINOMA
     Dosage: UNK UKN, UNK
  2. CARBOPLATIN [Suspect]
     Indication: INVASIVE DUCTAL BREAST CARCINOMA
  3. TRASTUZUMAB [Suspect]
     Indication: INVASIVE DUCTAL BREAST CARCINOMA
     Dosage: UNK UKN, UNK

REACTIONS (3)
  - Death [Fatal]
  - Metastases to lung [Unknown]
  - Lymphadenopathy mediastinal [Unknown]
